FAERS Safety Report 7636025-2 (Version None)
Quarter: 2011Q3

REPORT INFORMATION
  Report Type: 
  Country: None (occurrence: None)
  Receive Date: 20110726
  Receipt Date: 20110714
  Transmission Date: 20111222
  Serious: Yes (Other)
  Sender: FDA-Public Use
  Company Number: EG-ROCHE-790263

PATIENT
  Sex: Male
  Weight: 89 kg

DRUGS (4)
  1. ACETAMINOPHEN [Concomitant]
     Indication: INJECTION SITE PAIN
     Dosage: DOSE: 1-2
     Route: 048
     Dates: start: 20090315, end: 20090530
  2. PEGINTERFERON ALFA-2A [Suspect]
     Indication: HEPATITIS C
     Route: 058
     Dates: start: 20090414, end: 20090418
  3. AMARYL [Concomitant]
     Dosage: DOSE: 2;
     Route: 048
     Dates: start: 20090301
  4. RIBAVIRIN [Suspect]
     Indication: HEPATITIS C
     Route: 048
     Dates: start: 20090414, end: 20090418

REACTIONS (1)
  - NEUROPATHY PERIPHERAL [None]
